FAERS Safety Report 18136596 (Version 1)
Quarter: 2020Q3

REPORT INFORMATION
  Report Type: Spontaneous
  Country: US (occurrence: US)
  Receive Date: 20200811
  Receipt Date: 20200811
  Transmission Date: 20201103
  Serious: No
  Sender: FDA-Public Use
  Company Number: US-BEH-2020120964

PATIENT
  Age: 35 Year
  Sex: Female

DRUGS (2)
  1. PRIVIGEN [Suspect]
     Active Substance: HUMAN IMMUNOGLOBULIN G
     Indication: ENCEPHALITIS
     Dosage: 55 GRAM (550 ML), DAILY FOR 2 DAYS EVERY 4 WEEKS
     Route: 042
     Dates: start: 201912
  2. PRIVIGEN [Suspect]
     Active Substance: HUMAN IMMUNOGLOBULIN G
     Dosage: UNK UNK, TOT
     Route: 042
     Dates: start: 202007

REACTIONS (5)
  - Injection site exfoliation [Recovered/Resolved]
  - Product use in unapproved indication [Unknown]
  - Injection site swelling [Recovered/Resolved]
  - Swelling face [Recovered/Resolved]
  - No adverse event [Unknown]

NARRATIVE: CASE EVENT DATE: 202007
